FAERS Safety Report 17173005 (Version 2)
Quarter: 2022Q4

REPORT INFORMATION
  Report Type: Report from Study
  Country: DE (occurrence: None)
  Receive Date: 20191219
  Receipt Date: 20221230
  Transmission Date: 20230113
  Serious: Yes (Hospitalization)
  Sender: FDA-Public Use
  Company Number: DE-ROCHE-2496926

PATIENT
  Age: 59 Year
  Sex: Male

DRUGS (19)
  1. PLACEBO [Suspect]
     Active Substance: UNSPECIFIED INGREDIENT
     Indication: Bronchiolitis obliterans syndrome
     Route: 048
     Dates: start: 20180227, end: 20180621
  2. COTRIMOXAZOLE [Concomitant]
     Active Substance: SULFAMETHOXAZOLE\TRIMETHOPRIM
  3. ITRACONAZOLE [Concomitant]
     Active Substance: ITRACONAZOLE
  4. TORSEMIDE [Concomitant]
     Active Substance: TORSEMIDE
  5. METOPROLOL [Concomitant]
     Active Substance: METOPROLOL
  6. MAGNESIUM [Concomitant]
     Active Substance: MAGNESIUM
  7. AZITHROMYCIN [Concomitant]
     Active Substance: AZITHROMYCIN
  8. ENALAPRIL [Concomitant]
     Active Substance: ENALAPRIL
  9. PANTOZOL [Concomitant]
     Active Substance: PANTOPRAZOLE SODIUM
  10. CHOLECALCIFEROL [Concomitant]
     Active Substance: CHOLECALCIFEROL
  11. NOVALGIN (METAMIZOLE SODIUM) [Concomitant]
     Active Substance: METAMIZOLE SODIUM
  12. TAMSULOSIN [Concomitant]
     Active Substance: TAMSULOSIN
  13. LANTUS [Concomitant]
     Active Substance: INSULIN GLARGINE
  14. NOVORAPID [Concomitant]
     Active Substance: INSULIN ASPART
  15. MUCOCLEAR (GERMANY) [Concomitant]
  16. FOLIC ACID [Concomitant]
     Active Substance: FOLIC ACID
  17. PROGRAF [Concomitant]
     Active Substance: TACROLIMUS
  18. PREDNISOLONE [Concomitant]
     Active Substance: PREDNISOLONE
  19. MYCOPHENOLATE MOFETIL [Concomitant]
     Active Substance: MYCOPHENOLATE MOFETIL

REACTIONS (1)
  - Transplant rejection [Recovered/Resolved]

NARRATIVE: CASE EVENT DATE: 20180621
